FAERS Safety Report 5733502-6 (Version None)
Quarter: 2008Q2

REPORT INFORMATION
  Report Type: 
  Country: None (occurrence: None)
  Receive Date: 20080509
  Receipt Date: 20080507
  Transmission Date: 20081010
  Serious: Yes (Death)
  Sender: FDA-Public Use
  Company Number: AU-MERCK-0805AUS00096

PATIENT
  Age: 66 Year
  Sex: Female

DRUGS (9)
  1. ZOCOR [Suspect]
     Route: 048
  2. ISOPTIN [Suspect]
     Route: 048
  3. LANOXIN [Suspect]
     Route: 048
  4. MAREVAN [Suspect]
     Route: 048
  5. NITRO-DUR [Suspect]
     Route: 065
  6. NOVORAPID [Concomitant]
     Route: 065
  7. OXIS TURBUHALER [Concomitant]
     Route: 065
  8. VENTOLIN [Concomitant]
     Route: 065
  9. LANTUS [Concomitant]
     Indication: DIABETES MELLITUS
     Route: 051
     Dates: start: 20061001

REACTIONS (1)
  - MYOCARDIAL INFARCTION [None]
